FAERS Safety Report 4700425-0 (Version None)
Quarter: 2005Q2

REPORT INFORMATION
  Report Type: 
  Country: None (occurrence: None)
  Receive Date: 20050627
  Receipt Date: 20050310
  Transmission Date: 20051028
  Serious: Yes (Hospitalization)
  Sender: FDA-Public Use
  Company Number: JP-ROCHE-398757

PATIENT
  Age: 72 Year
  Sex: Male

DRUGS (3)
  1. TAMIFLU [Suspect]
     Route: 048
     Dates: start: 20050225, end: 20050228
  2. PA [Concomitant]
     Route: 048
     Dates: start: 20050225, end: 20050228
  3. CALONAL [Concomitant]
     Route: 048
     Dates: start: 20050225, end: 20050228

REACTIONS (6)
  - AGGRESSION [None]
  - ASPARTATE AMINOTRANSFERASE INCREASED [None]
  - BLOOD LACTATE DEHYDROGENASE INCREASED [None]
  - CONVULSION [None]
  - REYE'S SYNDROME [None]
  - SNORING [None]
